FAERS Safety Report 8017548-3 (Version None)
Quarter: 2011Q4

REPORT INFORMATION
  Report Type: 
  Country: None (occurrence: None)
  Receive Date: 20111228
  Receipt Date: 20111228
  Transmission Date: 20120403
  Serious: Yes (Hospitalization)
  Sender: FDA-Public Use
  Company Number: None

PATIENT
  Age: 41 Year
  Sex: Female
  Weight: 48.5349 kg

DRUGS (1)
  1. SPRYCEL [Suspect]
     Indication: CHRONIC MYELOID LEUKAEMIA
     Dosage: 20 MG DAILY PO INCREASED TO 40 MG
     Route: 048
     Dates: start: 20110817, end: 20110823

REACTIONS (2)
  - CHEST PAIN [None]
  - ABDOMINAL PAIN [None]
